FAERS Safety Report 6253420-7 (Version None)
Quarter: 2009Q3

REPORT INFORMATION
  Report Type: 
  Country: None (occurrence: None)
  Receive Date: 20090701
  Receipt Date: 20090626
  Transmission Date: 20100115
  Serious: No
  Sender: FDA-Public Use
  Company Number: US-B.I. PHARMACEUTICALS,INC./RIDGEFIELD-2009-BP-07805BP

PATIENT
  Sex: Female

DRUGS (3)
  1. ZANTAC 150 [Suspect]
     Indication: DYSPEPSIA
     Dosage: 300 MG
     Route: 048
     Dates: start: 20090626
  2. TUMS [Concomitant]
     Indication: DYSPEPSIA
     Route: 048
     Dates: start: 20090126
  3. ALZA-SELTZER [Concomitant]
     Indication: DYSPEPSIA
     Route: 048
     Dates: start: 20090126

REACTIONS (1)
  - CHEST DISCOMFORT [None]
